FAERS Safety Report 4811316-9 (Version None)
Quarter: 2005Q4

REPORT INFORMATION
  Report Type: 
  Country: None (occurrence: None)
  Receive Date: 20051026
  Receipt Date: 20051026
  Transmission Date: 20060501
  Serious: Yes (Hospitalization)
  Sender: FDA-Public Use
  Company Number: None

PATIENT
  Age: 63 Year
  Sex: Male
  Weight: 119.296 kg

DRUGS (2)
  1. LISINOPRIL [Suspect]
     Indication: HYPERTENSION
     Dosage: ONE TABLET DAILY PO
     Route: 048
     Dates: start: 20031212, end: 20050815
  2. CELECOXIB 200MG [Suspect]
     Indication: OSTEOARTHRITIS
     Dosage: ONE CAPSULE TWICE DAILY PO
     Route: 048
     Dates: start: 20031009, end: 20050815

REACTIONS (6)
  - BLOOD CREATININE INCREASED [None]
  - CARDIAC PACEMAKER REPLACEMENT [None]
  - DIZZINESS [None]
  - DRUG INTERACTION [None]
  - HYPERKALAEMIA [None]
  - WEIGHT DECREASED [None]
